FAERS Safety Report 24078586 (Version 2)
Quarter: 2024Q3

REPORT INFORMATION
  Report Type: Spontaneous
  Country: CA (occurrence: CA)
  Receive Date: 20240711
  Receipt Date: 20240726
  Transmission Date: 20241017
  Serious: No
  Sender: CELLTRION
  Company Number: CA-PFIZER INC-202400206139

PATIENT

DRUGS (2)
  1. INFLECTRA [Suspect]
     Active Substance: INFLIXIMAB-DYYB
     Dosage: 550 MG (W0, 2, 6 AND Q8 WEEKS)
     Route: 042
     Dates: start: 20240305
  2. INFLECTRA [Suspect]
     Active Substance: INFLIXIMAB-DYYB
     Dosage: 550 MG (W0, 2, 6 AND Q8 WEEKS)
     Route: 042
     Dates: start: 20240416

REACTIONS (1)
  - Presyncope [Unknown]
